FAERS Safety Report 12276520 (Version 1)
Quarter: 2016Q2

REPORT INFORMATION
  Report Type: Spontaneous
  Country: JP (occurrence: JP)
  Receive Date: 20160418
  Receipt Date: 20160418
  Transmission Date: 20160815
  Serious: Yes (Hospitalization, Other)
  Sender: FDA-Public Use
  Company Number: JP-ACTELION-A-CH2015-114670

PATIENT
  Age: 50 Year
  Sex: Female
  Weight: 58 kg

DRUGS (20)
  1. FUROSEMIDE. [Concomitant]
     Active Substance: FUROSEMIDE
  2. BERAPROST SODIUM [Concomitant]
     Active Substance: BERAPROST SODIUM
  3. MAGNESIUM OXIDE. [Concomitant]
     Active Substance: MAGNESIUM OXIDE
  4. CHLORPROMAZINE AND PROMETHAZINE [Concomitant]
     Active Substance: CHLORPROMAZINE\PROMETHAZINE
  5. TRACLEER [Suspect]
     Active Substance: BOSENTAN
     Indication: PULMONARY HYPERTENSION
     Dosage: 62.5 MG, BID
     Route: 048
     Dates: start: 20141018, end: 20150311
  6. TRACLEER [Suspect]
     Active Substance: BOSENTAN
     Dosage: 125 MG, BID
     Route: 048
     Dates: start: 20130608, end: 20130830
  7. TRACLEER [Suspect]
     Active Substance: BOSENTAN
     Dosage: 62.5 MG, TID
     Route: 048
     Dates: start: 20130831, end: 20141017
  8. REBAMIPIDE [Concomitant]
     Active Substance: REBAMIPIDE
  9. PANTETHINE [Concomitant]
     Active Substance: PANTETHINE
  10. WARFARIN [Concomitant]
     Active Substance: WARFARIN
  11. FLUNITRAZEPAM [Concomitant]
     Active Substance: FLUNITRAZEPAM
  12. LANSOPRAZOLE. [Concomitant]
     Active Substance: LANSOPRAZOLE
  13. ACETAMINOPHEN. [Concomitant]
     Active Substance: ACETAMINOPHEN
  14. TRACLEER [Suspect]
     Active Substance: BOSENTAN
     Dosage: 62.5 MG, TID
     Route: 048
     Dates: start: 20130508, end: 20130607
  15. AMOBARBITAL [Concomitant]
     Active Substance: AMOBARBITAL
  16. RISPERIDONE. [Concomitant]
     Active Substance: RISPERIDONE
  17. LEVOMEPROMAZIN [Concomitant]
     Active Substance: LEVOMEPROMAZINE
  18. OXYGEN. [Concomitant]
     Active Substance: OXYGEN
  19. SPIRONOLACTONE. [Concomitant]
     Active Substance: SPIRONOLACTONE
  20. TRACLEER [Suspect]
     Active Substance: BOSENTAN
     Dosage: 62.5 MG, BID
     Route: 048
     Dates: start: 20130414, end: 20130507

REACTIONS (5)
  - Orthostatic hypotension [Recovered/Resolved]
  - Aspartate aminotransferase increased [Recovered/Resolved]
  - Alanine aminotransferase increased [Recovered/Resolved]
  - Liver disorder [Recovered/Resolved]
  - Blood alkaline phosphatase increased [Recovered/Resolved]

NARRATIVE: CASE EVENT DATE: 20130830
